FAERS Safety Report 9445020 (Version 2)
Quarter: 2013Q3

REPORT INFORMATION
  Report Type: Spontaneous
  Country: JP (occurrence: JP)
  Receive Date: 20130807
  Receipt Date: 20130828
  Transmission Date: 20140515
  Serious: Yes (Death, Hospitalization, Other)
  Sender: FDA-Public Use
  Company Number: JP-TEVA-423080ISR

PATIENT
  Age: 89 Year
  Sex: Female
  Weight: 44 kg

DRUGS (1)
  1. LOPEMIN CAPSULES [Suspect]

REACTIONS (6)
  - Cardiac failure [Fatal]
  - Megacolon [Recovering/Resolving]
  - Ileus paralytic [Unknown]
  - Pyrexia [Unknown]
  - Abdominal distension [Recovering/Resolving]
  - Abdominal pain [Unknown]
